FAERS Safety Report 24976434 (Version 1)
Quarter: 2025Q1

REPORT INFORMATION
  Report Type: Report from Study
  Country: US (occurrence: US)
  Receive Date: 20250217
  Receipt Date: 20250217
  Transmission Date: 20250409
  Serious: Yes (Other)
  Sender: ALEXION PHARMACEUTICALS
  Company Number: US-AstraZeneca-CH-00804833A

PATIENT

DRUGS (1)
  1. ACALABRUTINIB [Suspect]
     Active Substance: ACALABRUTINIB
     Indication: Follicular lymphoma stage II
     Dosage: 100 MILLIGRAM, BID

REACTIONS (3)
  - Deafness [Unknown]
  - Arthritis [Unknown]
  - Protein total decreased [Unknown]
